FAERS Safety Report 13733359 (Version 1)
Quarter: 2017Q3

REPORT INFORMATION
  Report Type: Spontaneous
  Country: US (occurrence: US)
  Receive Date: 20170707
  Receipt Date: 20170707
  Transmission Date: 20171127
  Serious: No
  Sender: FDA-Public Use
  Company Number: US-ROCHE-1381308

PATIENT
  Age: 63 Year
  Sex: Female
  Weight: 45.4 kg

DRUGS (4)
  1. PERJETA [Suspect]
     Active Substance: PERTUZUMAB
     Indication: BREAST CANCER METASTATIC
     Dosage: 18 MONTHS?LOADING DOSE AS
     Route: 042
     Dates: start: 20130218, end: 20130218
  2. PERJETA [Suspect]
     Active Substance: PERTUZUMAB
     Dosage: MAINTENACE DOSE
     Route: 042
     Dates: end: 20140315
  3. HERCEPTIN [Suspect]
     Active Substance: TRASTUZUMAB
     Indication: BREAST CANCER METASTATIC
     Dosage: 18 MONTHS
     Route: 042
     Dates: start: 20130228, end: 20130228
  4. HERCEPTIN [Suspect]
     Active Substance: TRASTUZUMAB
     Dosage: MAINTENANCE DOSE
     Route: 042
     Dates: end: 20140315

REACTIONS (1)
  - Ejection fraction decreased [Unknown]

NARRATIVE: CASE EVENT DATE: 20140415
